FAERS Safety Report 6285142-0 (Version None)
Quarter: 2009Q3

REPORT INFORMATION
  Report Type: 
  Country: None (occurrence: None)
  Receive Date: 20090727
  Receipt Date: 20090715
  Transmission Date: 20100115
  Serious: Yes (Other)
  Sender: FDA-Public Use
  Company Number: JP-PFIZER INC-2009242448

PATIENT
  Age: 1 Year

DRUGS (2)
  1. ZITHROMAX [Suspect]
     Dosage: 75 G DAY
     Route: 048
     Dates: start: 20090713, end: 20090715
  2. KLARICID [Suspect]
     Dosage: UNK
     Route: 048

REACTIONS (2)
  - FAECES DISCOLOURED [None]
  - NASAL MUCOSAL DISCOLOURATION [None]
